FAERS Safety Report 6746401-8 (Version None)
Quarter: 2010Q2

REPORT INFORMATION
  Report Type: 
  Country: None (occurrence: None)
  Receive Date: 20100528
  Receipt Date: 20100205
  Transmission Date: 20101027
  Serious: No
  Sender: FDA-Public Use
  Company Number: A0849826A

PATIENT
  Age: 45 Year
  Sex: Male

DRUGS (10)
  1. LETAIRIS [Suspect]
     Indication: PULMONARY ARTERIAL HYPERTENSION
     Dosage: 10MG UNKNOWN
     Route: 048
     Dates: start: 20090601, end: 20100114
  2. FLOLAN [Suspect]
     Indication: PULMONARY ARTERIAL HYPERTENSION
     Route: 065
  3. REVATIO [Suspect]
     Indication: PULMONARY ARTERIAL HYPERTENSION
     Route: 065
     Dates: start: 20090129, end: 20100114
  4. ALLOPURINOL [Suspect]
     Indication: DRUG USE FOR UNKNOWN INDICATION
     Route: 065
  5. GABAPENTIN [Concomitant]
  6. ADVAIR DISKUS 100/50 [Concomitant]
     Route: 055
  7. COUMADIN [Concomitant]
  8. PROTONIX [Concomitant]
  9. LASIX [Concomitant]
  10. ASTELIN [Concomitant]

REACTIONS (4)
  - BLOOD BLISTER [None]
  - HYPERSENSITIVITY [None]
  - OROPHARYNGEAL BLISTERING [None]
  - URTICARIA [None]
